FAERS Safety Report 4699179-6 (Version None)
Quarter: 2005Q2

REPORT INFORMATION
  Report Type: 
  Country: None (occurrence: None)
  Receive Date: 20050624
  Receipt Date: 20050614
  Transmission Date: 20051028
  Serious: Yes (Other)
  Sender: FDA-Public Use
  Company Number: FR-JNJFOC-20050600346

PATIENT
  Age: 59 Year
  Sex: Male
  Weight: 102 kg

DRUGS (2)
  1. RISPERDAL [Suspect]
     Route: 049
     Dates: start: 20040101, end: 20050601
  2. LEXOMIL [Concomitant]
     Dates: start: 20040101

REACTIONS (2)
  - DELUSION [None]
  - PYREXIA [None]
